FAERS Safety Report 9004573 (Version 2)
Quarter: 2013Q1

REPORT INFORMATION
  Report Type: Report from Study
  Country: JP (occurrence: JP)
  Receive Date: 20130108
  Receipt Date: 20130328
  Transmission Date: 20140127
  Serious: Yes (Hospitalization, Other)
  Sender: FDA-Public Use
  Company Number: JP-ROCHE-1028060

PATIENT
  Age: 43 Year
  Sex: Male
  Weight: 90.2 kg

DRUGS (7)
  1. PEG-INTERFERON ALFA 2A [Suspect]
     Indication: CHRONIC HEPATITIS C
     Dosage: FORM OF ADMINISTRATION: SPI
     Route: 058
     Dates: start: 20111208, end: 20111223
  2. PEG-INTERFERON ALFA 2A [Suspect]
     Route: 058
     Dates: start: 20120106, end: 20120524
  3. RIBAVIRIN [Suspect]
     Indication: CHRONIC HEPATITIS C
     Route: 048
     Dates: start: 20111208, end: 20111221
  4. RIBAVIRIN [Suspect]
     Route: 048
     Dates: start: 20111223, end: 20120524
  5. BLINDED BI 201335 [Suspect]
     Indication: CHRONIC HEPATITIS C
     Route: 048
     Dates: start: 20111208, end: 20111221
  6. BLINDED BI 201335 [Suspect]
     Route: 001
     Dates: start: 20111223, end: 20120523
  7. URSO [Concomitant]
     Route: 065
     Dates: start: 20111208

REACTIONS (14)
  - Diarrhoea [Not Recovered/Not Resolved]
  - Fatigue [Recovered/Resolved]
  - Decreased appetite [Not Recovered/Not Resolved]
  - Abdominal pain upper [Recovered/Resolved]
  - Pancytopenia [Not Recovered/Not Resolved]
  - Nausea [Recovered/Resolved]
  - Vomiting [Recovered/Resolved]
  - Pyrexia [Not Recovered/Not Resolved]
  - Toothache [Recovered/Resolved]
  - Decreased appetite [Not Recovered/Not Resolved]
  - Anal haemorrhage [Recovered/Resolved]
  - Pruritus [Recovered/Resolved]
  - Hyperbilirubinaemia [Recovered/Resolved]
  - Nasopharyngitis [Recovered/Resolved]
